FAERS Safety Report 11791221 (Version 1)
Quarter: 2015Q4

REPORT INFORMATION
  Report Type: Spontaneous
  Country: PE (occurrence: PE)
  Receive Date: 20151201
  Receipt Date: 20151201
  Transmission Date: 20160305
  Serious: Yes (Other)
  Sender: FDA-Public Use
  Company Number: PE-JNJFOC-20151126484

PATIENT
  Age: 47 Year
  Sex: Female

DRUGS (1)
  1. REMICADE [Suspect]
     Active Substance: INFLIXIMAB
     Indication: PRODUCT USED FOR UNKNOWN INDICATION
     Route: 042

REACTIONS (4)
  - Dyspnoea [Recovering/Resolving]
  - Vital functions abnormal [Recovering/Resolving]
  - Chest discomfort [Recovering/Resolving]
  - Infusion related reaction [Recovering/Resolving]
